FAERS Safety Report 15739786 (Version 3)
Quarter: 2019Q3

REPORT INFORMATION
  Report Type: Spontaneous
  Country: US (occurrence: US)
  Receive Date: 20181219
  Receipt Date: 20190926
  Transmission Date: 20191004
  Serious: Yes (Other)
  Sender: FDA-Public Use
  Company Number: US-ASTRAZENECA-2018SF47735

PATIENT
  Age: 23286 Day
  Sex: Male
  Weight: 115.2 kg

DRUGS (21)
  1. FENOFIBRATE. [Concomitant]
     Active Substance: FENOFIBRATE
  2. ATORVASTATIN [Concomitant]
     Active Substance: ATORVASTATIN
     Indication: BLOOD CHOLESTEROL
  3. ALLOPURINOL. [Concomitant]
     Active Substance: ALLOPURINOL
     Indication: RENAL IMPAIRMENT
  4. VITAMIN C [Concomitant]
     Active Substance: ASCORBIC ACID
  5. WARFARIN [Concomitant]
     Active Substance: WARFARIN
     Dates: start: 2017
  6. FENOBIBRATE [Concomitant]
     Active Substance: FENOFIBRATE
  7. METOLAZONE. [Concomitant]
     Active Substance: METOLAZONE
  8. VITAMIN B12 [Concomitant]
     Active Substance: CYANOCOBALAMIN
  9. NEXIUM [Suspect]
     Active Substance: ESOMEPRAZOLE MAGNESIUM
     Route: 048
     Dates: start: 2012, end: 2016
  10. NEXIUM [Suspect]
     Active Substance: ESOMEPRAZOLE MAGNESIUM
     Route: 048
  11. NEXIUM [Suspect]
     Active Substance: ESOMEPRAZOLE MAGNESIUM
     Dosage: 40.0MG ONCE/SINGLE ADMINISTRATION
     Route: 048
     Dates: start: 20120619
  12. GLIMEPIRIDE. [Concomitant]
     Active Substance: GLIMEPIRIDE
  13. DIAZEPAM. [Concomitant]
     Active Substance: DIAZEPAM
  14. FOLIC ACID. [Concomitant]
     Active Substance: FOLIC ACID
  15. CALCIUM [Concomitant]
     Active Substance: CALCIUM
     Indication: MAXILLONASAL DYSPLASIA
  16. ASPIRIN. [Concomitant]
     Active Substance: ASPIRIN
  17. OMEPRAZOLE. [Suspect]
     Active Substance: OMEPRAZOLE
     Route: 065
  18. OMEPRAZOLE + SODIUM BICARBONATE [Suspect]
     Active Substance: OMEPRAZOLE\SODIUM BICARBONATE
     Route: 065
  19. DILTIAZEM. [Concomitant]
     Active Substance: DILTIAZEM
     Indication: BLOOD PRESSURE MEASUREMENT
  20. BUMETANIDE. [Concomitant]
     Active Substance: BUMETANIDE
  21. SPIRONOLACTONE. [Concomitant]
     Active Substance: SPIRONOLACTONE

REACTIONS (3)
  - Renal failure [Not Recovered/Not Resolved]
  - End stage renal disease [Unknown]
  - Chronic kidney disease [Not Recovered/Not Resolved]

NARRATIVE: CASE EVENT DATE: 20141015
